FAERS Safety Report 6153443-2 (Version None)
Quarter: 2009Q2

REPORT INFORMATION
  Report Type: 
  Country: None (occurrence: None)
  Receive Date: 20090413
  Receipt Date: 20090406
  Transmission Date: 20091009
  Serious: No
  Sender: FDA-Public Use
  Company Number: US-B.I. PHARMACEUTICALS,INC./RIDGEFIELD-2009-BP-04312BP

PATIENT
  Sex: Female

DRUGS (3)
  1. ZANTAC 150 [Suspect]
     Indication: PEPTIC ULCER
     Dosage: 300MG
     Route: 048
     Dates: start: 19980101
  2. LUNESTA [Concomitant]
     Indication: INSOMNIA
     Route: 048
     Dates: start: 19980101
  3. SYNTHROID [Concomitant]
     Indication: HYPOTHYROIDISM
     Dosage: .88NR
     Route: 048
     Dates: start: 19890101

REACTIONS (2)
  - FLATULENCE [None]
  - GASTROINTESTINAL HAEMORRHAGE [None]
